FAERS Safety Report 11377658 (Version 1)
Quarter: 2015Q3

REPORT INFORMATION
  Report Type: Spontaneous
  Country: US (occurrence: US)
  Receive Date: 20150811
  Receipt Date: 20150811
  Transmission Date: 20151125
  Serious: No
  Sender: FDA-Public Use
  Company Number: US-ELI_LILLY_AND_COMPANY-US200906005544

PATIENT

DRUGS (2)
  1. LYRICA [Concomitant]
     Active Substance: PREGABALIN
     Dates: end: 20090611
  2. HUMULIN R [Suspect]
     Active Substance: INSULIN HUMAN
     Dates: start: 20090423, end: 20090611

REACTIONS (2)
  - Fluid retention [Recovered/Resolved]
  - Oedema [Recovered/Resolved]
